FAERS Safety Report 17201989 (Version 1)
Quarter: 2020Q1

REPORT INFORMATION
  Report Type: Spontaneous
  Country: US (occurrence: US)
  Receive Date: 20191224
  Receipt Date: 20191224
  Transmission Date: 20200409
  Serious: Yes (Other)
  Sender: FDA-Public Use
  Company Number: None

PATIENT
  Age: 69 Year
  Sex: Male
  Weight: 63 kg

DRUGS (8)
  1. AZITHROMYCIN ANHYDROUS. [Concomitant]
     Active Substance: AZITHROMYCIN ANHYDROUS
  2. METHYLPHENIDATE. [Concomitant]
     Active Substance: METHYLPHENIDATE
  3. TESTOSTERONE CYPIONATE. [Concomitant]
     Active Substance: TESTOSTERONE CYPIONATE
  4. EPLERENONE 25MG TAB [Suspect]
     Active Substance: EPLERENONE
     Indication: HYPERTENSION
     Dosage: ?          QUANTITY:1 TABLET(S);?
     Route: 048
     Dates: start: 20191224, end: 20191224
  5. CEFDINAR [Concomitant]
  6. ARMOUR THYROID [Concomitant]
     Active Substance: THYROID, PORCINE
  7. ALBUTEROL. [Concomitant]
     Active Substance: ALBUTEROL
  8. MULTIPLE VITAMIN [Concomitant]
     Active Substance: VITAMINS

REACTIONS (8)
  - Dyspnoea [None]
  - Screaming [None]
  - Product formulation issue [None]
  - Akathisia [None]
  - Paraesthesia oral [None]
  - Hypoaesthesia [None]
  - Restlessness [None]
  - Blood potassium increased [None]

NARRATIVE: CASE EVENT DATE: 20191224
